FAERS Safety Report 23548369 (Version 1)
Quarter: 2024Q1

REPORT INFORMATION
  Report Type: Spontaneous
  Country: FR (occurrence: FR)
  Receive Date: 20240221
  Receipt Date: 20240221
  Transmission Date: 20240410
  Serious: Yes (Hospitalization)
  Sender: FDA-Public Use
  Company Number: None

PATIENT
  Age: 88 Year
  Sex: Male
  Weight: 80 kg

DRUGS (13)
  1. ETOPOSIDE PHOSPHATE [Suspect]
     Active Substance: ETOPOSIDE PHOSPHATE
     Indication: B-cell lymphoma stage IV
     Dosage: BY CYCLE
     Route: 042
     Dates: start: 20231103
  2. DOXORUBICIN [Suspect]
     Active Substance: DOXORUBICIN
     Indication: B-cell lymphoma stage IV
     Dosage: BY CYCLE. LYOPHILISATE FOR PARENTERAL USE (INFUSION) IN BOTTLE
     Route: 042
     Dates: start: 20231103
  3. DOXORUBICIN [Suspect]
     Active Substance: DOXORUBICIN
     Indication: B-cell lymphoma stage IV
     Dosage: BY CYCLE. LYOPHILISATE FOR PARENTERAL USE (INFUSION) IN BOTTLE
     Route: 042
     Dates: start: 20231124
  4. CYCLOPHOSPHAMIDE [Suspect]
     Active Substance: CYCLOPHOSPHAMIDE
     Indication: B-cell lymphoma stage IV
     Dosage: BY CYCLE. POWDER FOR ?INJECTABLE SOLUTION
     Route: 042
     Dates: start: 20231103
  5. CYCLOPHOSPHAMIDE [Suspect]
     Active Substance: CYCLOPHOSPHAMIDE
     Indication: B-cell lymphoma stage IV
     Dosage: BY CYCLE. POWDER FOR ?INJECTABLE SOLUTION
     Route: 042
     Dates: start: 20231124
  6. MABTHERA [Suspect]
     Active Substance: RITUXIMAB
     Indication: B-cell lymphoma stage IV
     Dosage: BY CYCLE. SOLUTION TO BE DILUTED FOR INFUSION
     Route: 042
     Dates: start: 20231103
  7. MABTHERA [Suspect]
     Active Substance: RITUXIMAB
     Indication: B-cell lymphoma stage IV
     Dosage: BY CYCLE. SOLUTION TO BE DILUTED FOR INFUSION
     Route: 042
     Dates: start: 20231124
  8. MESNA [Suspect]
     Active Substance: MESNA
     Indication: B-cell lymphoma stage IV
     Route: 042
     Dates: start: 20231103
  9. METHYLPREDNISOLONE [Suspect]
     Active Substance: METHYLPREDNISOLONE
     Dates: start: 20231124
  10. BACTRIM [Concomitant]
     Active Substance: SULFAMETHOXAZOLE\TRIMETHOPRIM
     Dosage: 1 TABLET(S) FOR 90 DAY(S)?1 TABLET PER DAY ON MONDAY, WEDNESDAY AND FRIDAY.
     Route: 048
  11. VALACYCLOVIR HYDROCHLORIDE [Concomitant]
     Active Substance: VALACYCLOVIR HYDROCHLORIDE
     Dosage: 1 TABLET(S) FOR 180 DAY(S)?1 TABLET PER DAY??DAILY DOSE: 1 DOSAGE FORM
     Route: 048
  12. FOLIC ACID [Concomitant]
     Active Substance: FOLIC ACID
     Dosage: 2 TABLET(S) FOR 180 DAY(S)?2 TABLETS PER DAY??DAILY DOSE: 2 DOSAGE FORM
     Route: 048
  13. PAXLOVID [Concomitant]
     Active Substance: NIRMATRELVIR\RITONAVIR

REACTIONS (4)
  - Hepatic cytolysis [Recovering/Resolving]
  - COVID-19 [Unknown]
  - General physical health deterioration [Unknown]
  - Tongue paralysis [Unknown]

NARRATIVE: CASE EVENT DATE: 20231201
